FAERS Safety Report 24358697 (Version 2)
Quarter: 2024Q4

REPORT INFORMATION
  Report Type: Spontaneous
  Country: JP (occurrence: JP)
  Receive Date: 20240924
  Receipt Date: 20241028
  Transmission Date: 20250115
  Serious: Yes (Hospitalization)
  Sender: ELI LILLY AND COMPANY
  Company Number: JP-ELI_LILLY_AND_COMPANY-JP202409014153

PATIENT
  Age: 42 Year
  Sex: Male
  Weight: 75.7 kg

DRUGS (4)
  1. EBGLYSS [Suspect]
     Active Substance: LEBRIKIZUMAB-LBKZ
     Indication: Dermatitis atopic
     Dosage: 500 MG
     Route: 058
     Dates: start: 20240905, end: 20240918
  2. BISOPROLOL FUMARATE [Concomitant]
     Active Substance: BISOPROLOL FUMARATE
     Indication: Sinus tachycardia
     Dosage: 2.5 MG, UNKNOWN
     Dates: start: 202406
  3. ELIQUIS [Concomitant]
     Active Substance: APIXABAN
     Indication: Thrombosis
     Dosage: 10 MG, UNKNOWN
     Dates: start: 202406
  4. ATEZOLIZUMAB [Concomitant]
     Active Substance: ATEZOLIZUMAB
     Indication: Lung neoplasm malignant
     Dosage: 1200 MG, UNKNOWN
     Dates: start: 202403, end: 202409

REACTIONS (3)
  - Metastases to spinal cord [Not Recovered/Not Resolved]
  - Metastases to central nervous system [Not Recovered/Not Resolved]
  - Metastases to meninges [Unknown]

NARRATIVE: CASE EVENT DATE: 20240910
